FAERS Safety Report 13050078 (Version 1)
Quarter: 2016Q4

REPORT INFORMATION
  Report Type: Other
  Country: US (occurrence: US)
  Receive Date: 20161221
  Receipt Date: 20161221
  Transmission Date: 20170207
  Serious: Yes (Other)
  Sender: FDA-Public Use
  Company Number: US-CELLTRION INC.-2016US013087

PATIENT

DRUGS (39)
  1. BETAMETHASONE DIPROPIONATE, AUGMENTED [Concomitant]
  2. LIDOCAINE. [Concomitant]
     Active Substance: LIDOCAINE
  3. MACROGOL [Concomitant]
     Active Substance: POLYETHYLENE GLYCOLS
  4. OMEPRAZOLE. [Concomitant]
     Active Substance: OMEPRAZOLE
  5. PROMETHAZINE [Concomitant]
     Active Substance: PROMETHAZINE\PROMETHAZINE HYDROCHLORIDE
  6. SALBUTAMOL SULFATE [Concomitant]
     Active Substance: ALBUTEROL SULFATE
  7. TIOTROPIUM BROMIDE [Concomitant]
     Active Substance: TIOTROPIUM BROMIDE
  8. ETANERCEPT [Suspect]
     Active Substance: ETANERCEPT
     Indication: RHEUMATOID ARTHRITIS
     Dosage: 50 MG, UNK
     Route: 058
  9. ABATACEPT [Suspect]
     Active Substance: ABATACEPT
  10. BRIMONIDINE TARTRATE. [Concomitant]
     Active Substance: BRIMONIDINE TARTRATE
  11. CICLOSPORIN [Concomitant]
     Active Substance: CYCLOSPORINE
  12. LORATADINE. [Concomitant]
     Active Substance: LORATADINE
  13. HYDROCODONE BITARTRATE. [Concomitant]
     Active Substance: HYDROCODONE BITARTRATE
  14. KETOCONAZOLE. [Concomitant]
     Active Substance: KETOCONAZOLE
  15. PARAFFIN [Concomitant]
     Active Substance: PARAFFIN
  16. INFLIXIMAB HOSPIRA [Suspect]
     Active Substance: INFLIXIMAB
  17. BRINZOLAMIDE [Concomitant]
     Active Substance: BRINZOLAMIDE
  18. GABAPENTIN. [Concomitant]
     Active Substance: GABAPENTIN
  19. BIMATOPROST. [Concomitant]
     Active Substance: BIMATOPROST
  20. FLUTICASONE [Concomitant]
     Active Substance: FLUTICASONE\FLUTICASONE PROPIONATE
  21. FLUTICASONE PROPIONATE. [Concomitant]
     Active Substance: FLUTICASONE PROPIONATE
  22. HYDROCORTISONE ACETATE. [Concomitant]
     Active Substance: HYDROCORTISONE ACETATE
  23. PREDNISONE. [Concomitant]
     Active Substance: PREDNISONE
  24. TRIAMCINOLONE [Concomitant]
     Active Substance: TRIAMCINOLONE
  25. TOCILIZUMAB [Suspect]
     Active Substance: TOCILIZUMAB
  26. DIAZEPAM. [Concomitant]
     Active Substance: DIAZEPAM
  27. FOLIC ACID. [Concomitant]
     Active Substance: FOLIC ACID
  28. HYDROCORTISONE ACETATE. [Concomitant]
     Active Substance: HYDROCORTISONE ACETATE
  29. HYDROXYCHLOROQUINE SULFATE. [Concomitant]
     Active Substance: HYDROXYCHLOROQUINE SULFATE
  30. MACROGOL [Concomitant]
     Active Substance: POLYETHYLENE GLYCOLS
  31. PAROXETINE. [Concomitant]
     Active Substance: PAROXETINE
  32. TRAMADOL. [Concomitant]
     Active Substance: TRAMADOL
  33. VALACICLOVIR HYDROCHLORIDE [Concomitant]
     Active Substance: VALACYCLOVIR HYDROCHLORIDE
  34. DOCUSATE SODIUM. [Concomitant]
     Active Substance: DOCUSATE SODIUM
  35. OXYCODONE [Concomitant]
     Active Substance: OXYCODONE
  36. COLECALCIFEROL [Concomitant]
     Active Substance: CHOLECALCIFEROL
  37. METHOTREXATE. [Concomitant]
     Active Substance: METHOTREXATE
  38. NYSTATIN. [Concomitant]
     Active Substance: NYSTATIN
  39. QUETIAPINE. [Concomitant]
     Active Substance: QUETIAPINE

REACTIONS (30)
  - Rotator cuff syndrome [Unknown]
  - Mass [Unknown]
  - Anxiety [Unknown]
  - Pyrexia [Recovering/Resolving]
  - Chronic obstructive pulmonary disease [Unknown]
  - Dyspnoea [Unknown]
  - Tenderness [Unknown]
  - Cellulitis staphylococcal [Unknown]
  - Stomatitis [Unknown]
  - Diverticulum [Unknown]
  - Scratch [Unknown]
  - Hypoaesthesia [Unknown]
  - Depression [Unknown]
  - Skin ulcer [Unknown]
  - Arthralgia [Unknown]
  - Musculoskeletal pain [Unknown]
  - Musculoskeletal stiffness [Unknown]
  - Pain in extremity [Unknown]
  - Ocular hyperaemia [Unknown]
  - Photosensitivity reaction [Unknown]
  - Treatment failure [Unknown]
  - Infusion site reaction [Unknown]
  - Abscess limb [Unknown]
  - Grip strength decreased [Unknown]
  - Dry eye [Unknown]
  - Dry mouth [Unknown]
  - Pain [Unknown]
  - Fatigue [Unknown]
  - Onychomadesis [Unknown]
  - Vitreous floaters [Unknown]

NARRATIVE: CASE EVENT DATE: 201609
